FAERS Safety Report 9304706 (Version 3)
Quarter: 2013Q4

REPORT INFORMATION
  Report Type: Spontaneous
  Country: US (occurrence: US)
  Receive Date: 20130523
  Receipt Date: 20131007
  Transmission Date: 20140711
  Serious: No
  Sender: FDA-Public Use
  Company Number: US-BIOGENIDEC-2013BI045743

PATIENT
  Age: 57 Year
  Sex: Female

DRUGS (5)
  1. TYSABRI [Suspect]
     Indication: MULTIPLE SCLEROSIS
     Route: 042
     Dates: start: 20071113, end: 20130408
  2. TYSABRI [Suspect]
     Indication: MULTIPLE SCLEROSIS
     Route: 042
     Dates: start: 20071113
  3. SOLUMEDROL [Concomitant]
  4. ZOLOFT [Concomitant]
     Indication: DEPRESSION
  5. VIIBRYD [Concomitant]
     Indication: DEPRESSION

REACTIONS (12)
  - Visual impairment [Recovered/Resolved]
  - Musculoskeletal disorder [Unknown]
  - Stress [Unknown]
  - Muscular weakness [Not Recovered/Not Resolved]
  - Insomnia [Recovered/Resolved]
  - Anxiety [Not Recovered/Not Resolved]
  - Cataract [Recovered/Resolved]
  - Visual acuity reduced [Not Recovered/Not Resolved]
  - Cataract operation [Unknown]
  - Eye complication associated with device [Unknown]
  - Depression [Recovered/Resolved]
  - Laser therapy [Unknown]
